FAERS Safety Report 9851183 (Version 1)
Quarter: 2014Q1

REPORT INFORMATION
  Report Type: Spontaneous
  Country: US (occurrence: US)
  Receive Date: 20140128
  Receipt Date: 20140128
  Transmission Date: 20141002
  Serious: No
  Sender: FDA-Public Use
  Company Number: US-SA-2013SA097276

PATIENT
  Age: 45 Year
  Sex: Female
  Weight: 79 kg

DRUGS (5)
  1. LASIX [Suspect]
     Indication: LOCAL SWELLING
     Route: 048
     Dates: start: 2013, end: 2013
  2. NEURONTIN [Suspect]
     Indication: NEURALGIA
     Route: 065
  3. HYDROCHLOROTHIAZIDE [Suspect]
     Indication: LOCAL SWELLING
     Route: 065
     Dates: start: 2013, end: 2013
  4. CYMBALTA [Suspect]
     Indication: NEURALGIA
     Route: 065
  5. LANTUS [Concomitant]
     Indication: DIABETES MELLITUS

REACTIONS (3)
  - Neuralgia [Unknown]
  - Joint swelling [Recovering/Resolving]
  - Drug ineffective [Unknown]
